FAERS Safety Report 9794725 (Version 3)
Quarter: 2014Q2

REPORT INFORMATION
  Report Type: Spontaneous
  Country: US (occurrence: US)
  Receive Date: 20140102
  Receipt Date: 20140513
  Transmission Date: 20141212
  Serious: No
  Sender: FDA-Public Use
  Company Number: US-PFIZER INC-2013374112

PATIENT
  Sex: Male

DRUGS (1)
  1. CADUET [Suspect]
     Indication: BLOOD PRESSURE
     Dosage: UNK

REACTIONS (3)
  - Drug ineffective [Unknown]
  - Memory impairment [Unknown]
  - Stress [Unknown]
